FAERS Safety Report 8393504-0 (Version None)
Quarter: 2012Q2

REPORT INFORMATION
  Report Type: 
  Country: None (occurrence: None)
  Receive Date: 20120529
  Receipt Date: 20120521
  Transmission Date: 20120825
  Serious: Yes (Death)
  Sender: FDA-Public Use
  Company Number: JP-FRI-1000030817

PATIENT
  Sex: Female
  Weight: 41 kg

DRUGS (5)
  1. GOODMIN [Concomitant]
     Indication: INSOMNIA
     Dosage: 0.25 MG
     Route: 048
     Dates: start: 20120209, end: 20120403
  2. LEXAPRO [Suspect]
     Indication: DEPRESSION
     Dosage: 10 MG
     Route: 048
     Dates: start: 20120209
  3. MUCOSTA [Concomitant]
     Indication: GASTRITIS
     Dosage: 200 MG
     Route: 048
     Dates: start: 20120209, end: 20120222
  4. MEDIPEACE [Suspect]
     Indication: SLEEP DISORDER
     Dosage: 1 MG
     Route: 048
     Dates: start: 20120222
  5. AMOBAN [Suspect]
     Indication: INITIAL INSOMNIA
     Dosage: 7.5 MG
     Route: 048
     Dates: start: 20120404

REACTIONS (1)
  - DEATH [None]
